FAERS Safety Report 8580781-6 (Version None)
Quarter: 2012Q3

REPORT INFORMATION
  Report Type: 
  Country: None (occurrence: None)
  Receive Date: 20120809
  Receipt Date: 20120801
  Transmission Date: 20120928
  Serious: No
  Sender: FDA-Public Use
  Company Number: US-BIOGENIDEC-2012BI028854

PATIENT
  Age: 57 Year
  Sex: Male

DRUGS (2)
  1. ADVIL [Concomitant]
  2. AVONEX [Suspect]
     Indication: MULTIPLE SCLEROSIS
     Route: 030
     Dates: start: 20120723

REACTIONS (3)
  - FATIGUE [None]
  - ARTHROPATHY [None]
  - ASTHENIA [None]
